FAERS Safety Report 20436226 (Version 2)
Quarter: 2022Q1

REPORT INFORMATION
  Report Type: Spontaneous
  Country: CZ (occurrence: CZ)
  Receive Date: 20220207
  Receipt Date: 20220216
  Transmission Date: 20220424
  Serious: Yes (Hospitalization, Other)
  Sender: FDA-Public Use
  Company Number: CZ-TEVA-2022-CZ-2004724

PATIENT
  Age: 5 Year
  Sex: Male
  Weight: 18.5 kg

DRUGS (1)
  1. CLARITHROMYCIN [Suspect]
     Active Substance: CLARITHROMYCIN
     Indication: Tracheitis
     Dosage: MACROLIDE ANTIBIOTIC FOR SUSPECTED TRACHEITIS TWICE IN TWO MONTHS
     Route: 065

REACTIONS (1)
  - Endocarditis [Recovered/Resolved]
